FAERS Safety Report 13619264 (Version 2)
Quarter: 2017Q2

REPORT INFORMATION
  Report Type: Spontaneous
  Country: US (occurrence: US)
  Receive Date: 20170606
  Receipt Date: 20170607
  Transmission Date: 20170830
  Serious: No
  Sender: FDA-Public Use
  Company Number: US-PURDUE-USA-2016-0132093

PATIENT
  Sex: Female

DRUGS (1)
  1. BUTRANS [Suspect]
     Active Substance: BUPRENORPHINE
     Indication: PAIN MANAGEMENT
     Dosage: 15 MCG/HR, WEEKLY
     Route: 062
     Dates: start: 201602

REACTIONS (4)
  - Inappropriate schedule of drug administration [Unknown]
  - Application site irritation [Not Recovered/Not Resolved]
  - Application site burn [Unknown]
  - Application site rash [Not Recovered/Not Resolved]

NARRATIVE: CASE EVENT DATE: 2016
